FAERS Safety Report 20710440 (Version 1)
Quarter: 2022Q2

REPORT INFORMATION
  Report Type: Report from Study
  Country: LB (occurrence: LB)
  Receive Date: 20220414
  Receipt Date: 20220414
  Transmission Date: 20220721
  Serious: Yes (Death)
  Sender: FDA-Public Use
  Company Number: LB-NOVARTISPH-NVSC2022LB085551

PATIENT
  Age: 47 Year
  Sex: Female
  Weight: 70 kg

DRUGS (1)
  1. TYKERB [Suspect]
     Active Substance: LAPATINIB DITOSYLATE
     Indication: Breast cancer
     Dosage: UNK
     Route: 048
     Dates: start: 20210618, end: 20220315

REACTIONS (1)
  - Death [Fatal]

NARRATIVE: CASE EVENT DATE: 20220413
